FAERS Safety Report 25904744 (Version 2)
Quarter: 2025Q4

REPORT INFORMATION
  Report Type: Report from Study
  Country: BR (occurrence: BR)
  Receive Date: 20251010
  Receipt Date: 20251201
  Transmission Date: 20260117
  Serious: Yes (Other)
  Sender: TAKEDA
  Company Number: BR-TAKEDA-2025TUS085101

PATIENT
  Age: 31 Year
  Sex: Female

DRUGS (1)
  1. VEDOLIZUMAB [Suspect]
     Active Substance: VEDOLIZUMAB
     Indication: Colitis ulcerative
     Dosage: 300 MILLIGRAM, Q4WEEKS
     Dates: start: 202412

REACTIONS (9)
  - Colitis ulcerative [Unknown]
  - Depression [Recovering/Resolving]
  - Abdominal pain upper [Recovering/Resolving]
  - Anger [Recovering/Resolving]
  - Discouragement [Unknown]
  - Rectal tenesmus [Recovering/Resolving]
  - Loss of personal independence in daily activities [Recovering/Resolving]
  - Social problem [Recovering/Resolving]
  - Fatigue [Recovering/Resolving]
